FAERS Safety Report 4933505-5 (Version None)
Quarter: 2006Q1

REPORT INFORMATION
  Report Type: 
  Country: None (occurrence: None)
  Receive Date: 20060306
  Receipt Date: 20060222
  Transmission Date: 20060701
  Serious: Yes (Hospitalization)
  Sender: FDA-Public Use
  Company Number: FR-BRISTOL-MYERS SQUIBB COMPANY-13294053

PATIENT
  Age: 57 Year
  Sex: Female

DRUGS (2)
  1. ABILIFY [Suspect]
     Route: 048
     Dates: start: 20051025, end: 20051222
  2. PRAZEPAM [Suspect]
     Dosage: 10 MG TID UNTIL 08-NOV-05; 40 MG TID UNTIL 15-NOV-2005; 20 MG TID UNTIL 30-DEC-2005
     Route: 048
     Dates: start: 20051025, end: 20051230

REACTIONS (1)
  - CONVERSION DISORDER [None]
